FAERS Safety Report 4572273-6 (Version None)
Quarter: 2005Q1

REPORT INFORMATION
  Report Type: 
  Country: None (occurrence: None)
  Receive Date: 20050203
  Receipt Date: 20050120
  Transmission Date: 20050727
  Serious: No
  Sender: FDA-Public Use
  Company Number: 2005AP00508

PATIENT
  Age: 72 Year
  Sex: Female

DRUGS (1)
  1. IRESSA [Suspect]
     Indication: SMALL CELL LUNG CANCER STAGE UNSPECIFIED
     Dosage: 250 MG DAILY PO
     Route: 048

REACTIONS (3)
  - ECZEMA ASTEATOTIC [None]
  - HEPATIC FUNCTION ABNORMAL [None]
  - XERODERMA [None]
